FAERS Safety Report 9423256 (Version 2)
Quarter: 2013Q3

REPORT INFORMATION
  Report Type: Spontaneous
  Country: US (occurrence: US)
  Receive Date: 20130726
  Receipt Date: 20130801
  Transmission Date: 20140515
  Serious: Yes (Other)
  Sender: FDA-Public Use
  Company Number: US-PFIZER INC-2013215688

PATIENT
  Age: 59 Year
  Sex: Male
  Weight: 147 kg

DRUGS (3)
  1. SOMAVERT [Suspect]
     Indication: PITUITARY TUMOUR
     Dosage: 10 MG, 1X/DAY
     Route: 058
     Dates: start: 201306
  2. ANDROGEL [Concomitant]
     Dosage: (1%) 25 MG, UNK
  3. DICLOFENAC [Concomitant]
     Dosage: 75 MG EC, UNK

REACTIONS (5)
  - Neoplasm recurrence [Unknown]
  - Nausea [Unknown]
  - Vomiting [Unknown]
  - Decreased appetite [Unknown]
  - Feeling abnormal [Unknown]
